FAERS Safety Report 15703070 (Version 4)
Quarter: 2019Q1

REPORT INFORMATION
  Report Type: Report from Study
  Country: US (occurrence: US)
  Receive Date: 20181210
  Receipt Date: 20190208
  Transmission Date: 20190417
  Serious: Yes (Hospitalization, Other)
  Sender: FDA-Public Use
  Company Number: US-ASTELLAS-2018US051796

PATIENT
  Age: 71 Year
  Sex: Male

DRUGS (2)
  1. ENZALUTAMIDE [Suspect]
     Active Substance: ENZALUTAMIDE
     Indication: PROSTATE CANCER
     Route: 048
  2. ENZALUTAMIDE [Suspect]
     Active Substance: ENZALUTAMIDE
     Indication: BONE CANCER

REACTIONS (9)
  - Memory impairment [Unknown]
  - Escherichia sepsis [Recovered/Resolved]
  - Urinary tract infection [Recovered/Resolved]
  - Constipation [Unknown]
  - Septic shock [Unknown]
  - Fatigue [Unknown]
  - Sepsis [Unknown]
  - Asthenia [Unknown]
  - Back pain [Unknown]

NARRATIVE: CASE EVENT DATE: 20181123
